FAERS Safety Report 7463462-1 (Version None)
Quarter: 2011Q2

REPORT INFORMATION
  Report Type: 
  Country: None (occurrence: None)
  Receive Date: 20110506
  Receipt Date: 20110426
  Transmission Date: 20111010
  Serious: Yes (Death)
  Sender: FDA-Public Use
  Company Number: JP-KINGPHARMUSA00001-K201100502

PATIENT
  Sex: Male
  Weight: 63 kg

DRUGS (12)
  1. SIGMART [Concomitant]
     Indication: SEPSIS
     Dosage: 4 MG, HR
     Route: 042
     Dates: start: 20090714, end: 20090720
  2. NORADRENALINE [Concomitant]
     Indication: SEPSIS
     Dosage: 0.5 MG, HR
     Route: 042
     Dates: start: 20090714, end: 20090720
  3. NORADRENALINE [Concomitant]
     Indication: CONCOMITANT DISEASE PROGRESSION
  4. PROPOFOL [Concomitant]
     Indication: CONCOMITANT DISEASE PROGRESSION
     Dosage: 30 MG, HR
     Route: 042
     Dates: start: 20090714, end: 20090720
  5. SYNERCID [Suspect]
     Dosage: 8 MG/KG, TID
     Route: 042
     Dates: start: 20090717, end: 20090720
  6. MILRINONE [Concomitant]
     Indication: CONCOMITANT DISEASE PROGRESSION
     Dosage: 2 MG, HR
     Route: 042
     Dates: start: 20090714, end: 20090720
  7. TAKEPRON [Concomitant]
     Indication: CONCOMITANT DISEASE PROGRESSION
     Dosage: 30 MG, QD
     Route: 042
     Dates: start: 20090714, end: 20090720
  8. FIRSTCIN [Concomitant]
     Indication: SEPSIS
     Dosage: 4 G, QD
     Route: 042
     Dates: start: 20090714, end: 20090716
  9. SYNERCID [Suspect]
     Indication: SEPSIS
     Dosage: 8 MG/KG, BID
     Route: 042
     Dates: start: 20090716, end: 20090716
  10. VANCOMYCIN [Concomitant]
     Indication: SEPSIS
     Dosage: 2 G, QD
     Route: 042
     Dates: start: 20090714, end: 20090720
  11. FUNGUARD [Concomitant]
     Indication: PROPHYLAXIS
     Dosage: 100 MG, QD
     Route: 042
     Dates: start: 20090714, end: 20090720
  12. OLIVES K [Concomitant]
     Indication: CONCOMITANT DISEASE PROGRESSION
     Dosage: 40 MG, HR
     Route: 042
     Dates: start: 20090714, end: 20090720

REACTIONS (1)
  - MULTI-ORGAN FAILURE [None]
